FAERS Safety Report 7383485-0 (Version None)
Quarter: 2011Q1

REPORT INFORMATION
  Report Type: 
  Country: None (occurrence: None)
  Receive Date: 20110330
  Receipt Date: 20110321
  Transmission Date: 20110831
  Serious: Yes (Hospitalization)
  Sender: FDA-Public Use
  Company Number: FR-ELI_LILLY_AND_COMPANY-FR201103006419

PATIENT
  Age: 40 Year
  Sex: Female

DRUGS (4)
  1. TRIMEPRAZINE TARTRATE [Concomitant]
     Indication: SCHIZOPHRENIA
     Dosage: 5 MG, QD
     Route: 048
  2. LEXOMIL [Concomitant]
     Indication: SCHIZOPHRENIA
     Dosage: 6 MG, QD
     Route: 048
  3. ZYPREXA [Suspect]
     Indication: SCHIZOPHRENIA
     Dosage: 10 MG, QD
     Route: 048
     Dates: start: 20110101, end: 20110312
  4. EFFEXOR [Concomitant]
     Indication: SCHIZOPHRENIA
     Dosage: 150 MG, QD
     Route: 048

REACTIONS (1)
  - GENERALISED OEDEMA [None]
